FAERS Safety Report 4357839-0 (Version None)
Quarter: 2004Q2

REPORT INFORMATION
  Report Type: 
  Country: None (occurrence: None)
  Receive Date: 20040512
  Receipt Date: 20040426
  Transmission Date: 20050107
  Serious: Yes (Hospitalization)
  Sender: FDA-Public Use
  Company Number: 206092

PATIENT
  Age: 52 Year
  Weight: 66 kg

DRUGS (3)
  1. MABTHERA (RITUXIMAB) CONC FOR SOLUTION FOR INFUSION [Suspect]
     Dosage: 325 MG/M2, 1/MONTH, INTRAVENOUS
     Route: 042
     Dates: start: 20020906, end: 20030314
  2. FLUDARABINE PHOSPHATE [Suspect]
     Dosage: 25 MG/M2, 3/MONTH, INTRAVENOUS
     Route: 042
     Dates: start: 20020906, end: 20030314
  3. CYCLOPHOSPHAMIDE [Concomitant]

REACTIONS (4)
  - CYSTITIS HAEMORRHAGIC [None]
  - DISEASE RECURRENCE [None]
  - HYPOGAMMAGLOBULINAEMIA [None]
  - INFECTION [None]
